FAERS Safety Report 8958789 (Version 1)
Quarter: 2012Q4

REPORT INFORMATION
  Report Type: Spontaneous
  Country: US (occurrence: None)
  Receive Date: 20121206
  Receipt Date: 20121206
  Transmission Date: 20130627
  Serious: No
  Sender: FDA-Public Use
  Company Number: None

PATIENT
  Age: 49 Year
  Sex: Female
  Weight: 82.56 kg

DRUGS (1)
  1. PROPOFOL [Suspect]
     Indication: COLONOSCOPY
     Dosage: unknown  unknown unk
     Dates: start: 20121128, end: 20121128

REACTIONS (4)
  - Pyrexia [None]
  - Chills [None]
  - Cough [None]
  - Anaesthetic complication [None]
